FAERS Safety Report 9193307 (Version 1)
Quarter: 2013Q1

REPORT INFORMATION
  Report Type: Spontaneous
  Country: US (occurrence: None)
  Receive Date: 20130325
  Receipt Date: 20130325
  Transmission Date: 20140127
  Serious: Yes (Other)
  Sender: FDA-Public Use
  Company Number: None

PATIENT
  Age: 26 Year
  Sex: Male
  Weight: 95.26 kg

DRUGS (1)
  1. STRATERRA [Suspect]
     Indication: ATTENTION DEFICIT/HYPERACTIVITY DISORDER
     Dosage: 75MG PER DAY PO
     Route: 048
     Dates: start: 20071201, end: 20130321

REACTIONS (5)
  - Migraine [None]
  - Dizziness [None]
  - Vertigo [None]
  - Disorientation [None]
  - Confusional state [None]
